FAERS Safety Report 9565529 (Version 1)
Quarter: 2013Q3

REPORT INFORMATION
  Report Type: Spontaneous
  Country: US (occurrence: US)
  Receive Date: 20130930
  Receipt Date: 20130930
  Transmission Date: 20140515
  Serious: Yes (Congenital Anomaly, Other)
  Sender: FDA-Public Use
  Company Number: US-PFIZER INC-2013276748

PATIENT
  Sex: Female

DRUGS (15)
  1. ZOLOFT [Suspect]
     Dosage: UNK
     Route: 064
     Dates: start: 2002, end: 2006
  2. PRENATAL VITAMINS [Concomitant]
     Route: 064
  3. ALPRAZOLAM [Concomitant]
     Route: 064
  4. RISPERDAL [Concomitant]
     Route: 064
  5. ZITROMAX [Concomitant]
     Route: 064
  6. PRINCIPEN [Concomitant]
     Route: 064
  7. LORAZEPAM [Concomitant]
     Route: 064
  8. PROMETHAZINE [Concomitant]
     Route: 064
  9. CELEXA [Concomitant]
     Route: 064
  10. PROZAC [Concomitant]
     Route: 064
  11. KLONOPIN [Concomitant]
     Route: 064
  12. EFFEXOR [Concomitant]
     Route: 064
  13. CLARITIN-D [Concomitant]
     Route: 064
  14. PREDNISONE [Concomitant]
     Route: 064
  15. PROMETRIUM [Concomitant]
     Route: 064

REACTIONS (2)
  - Maternal exposure during pregnancy [Unknown]
  - Atrioventricular septal defect [Unknown]
